FAERS Safety Report 8330922-0 (Version None)
Quarter: 2012Q2

REPORT INFORMATION
  Report Type: 
  Country: None (occurrence: None)
  Receive Date: 20120502
  Receipt Date: 20120402
  Transmission Date: 20120825
  Serious: No
  Sender: FDA-Public Use
  Company Number: US-AMGEN-USASP2011069747

PATIENT
  Age: 71 Year
  Sex: Female

DRUGS (1)
  1. ENBREL [Suspect]
     Indication: RHEUMATOID ARTHRITIS
     Dosage: 50 MG, QWK
     Route: 058
     Dates: start: 20111221

REACTIONS (11)
  - INJECTION SITE ERYTHEMA [None]
  - INJECTION SITE REACTION [None]
  - OEDEMA PERIPHERAL [None]
  - ARTHRALGIA [None]
  - VARICOSE VEIN [None]
  - ACTIVITIES OF DAILY LIVING IMPAIRED [None]
  - INJECTION SITE PAIN [None]
  - INJECTION SITE PRURITUS [None]
  - DRUG EFFECT DECREASED [None]
  - RHEUMATOID ARTHRITIS [None]
  - LIVER DISORDER [None]
